FAERS Safety Report 4533077-3 (Version None)
Quarter: 2004Q4

REPORT INFORMATION
  Report Type: 
  Country: None (occurrence: None)
  Receive Date: 20041221
  Receipt Date: 20040323
  Transmission Date: 20050328
  Serious: Yes (Hospitalization, Other)
  Sender: FDA-Public Use
  Company Number: PL-NOVOPROD-236076

PATIENT
  Age: 20 Year
  Sex: Male
  Weight: 79 kg

DRUGS (8)
  1. NORDITROPIN SIMPLEXX [Suspect]
     Indication: GROWTH HORMONE DEFICIENCY
     Dosage: 1 MG, QD
     Dates: start: 20020527, end: 20040318
  2. HYDROCORTISONE [Concomitant]
     Dosage: 15 MG, QD
     Route: 048
     Dates: start: 20021127, end: 20040319
  3. MINIRIN ^FERRING^ [Concomitant]
     Dosage: .1 MG, QD
     Route: 048
     Dates: start: 20031202
  4. TESTOSTERON - SLOW RELEASE [Concomitant]
     Dosage: UNK, UNK
     Route: 030
     Dates: start: 20001117
  5. L-THYROXIN ^HENNING BERLIN^ [Concomitant]
  6. GENOTROPIN [Concomitant]
     Dosage: 0.5 I.V./KG
     Route: 042
  7. SAIZEN [Concomitant]
     Dosage: 0.5 I.V./KG
     Route: 042
  8. NORDITROPIN [Concomitant]
     Dosage: 0.6 I.V./KG.
     Route: 042

REACTIONS (3)
  - CORTISOL FREE URINE INCREASED [None]
  - CUSHING'S SYNDROME [None]
  - DISEASE RECURRENCE [None]
